FAERS Safety Report 9092973 (Version 1)
Quarter: 2013Q1

REPORT INFORMATION
  Report Type: Report from Study
  Country: US (occurrence: US)
  Receive Date: 20130218
  Receipt Date: 20130218
  Transmission Date: 20140127
  Serious: No
  Sender: FDA-Public Use
  Company Number: US-ABBOTT-12P-163-0979050-00

PATIENT
  Sex: Male
  Weight: 86.26 kg

DRUGS (10)
  1. SIMCOR 500/20 [Suspect]
     Indication: BLOOD CHOLESTEROL INCREASED
     Dosage: 500MG/20MG DAILY
     Dates: start: 2010
  2. SIMCOR 500/20 [Suspect]
     Indication: HIGH DENSITY LIPOPROTEIN
  3. SIMCOR 500/20 [Suspect]
     Indication: LOW DENSITY LIPOPROTEIN
  4. SIMCOR 1000MG/40MG [Suspect]
     Indication: BLOOD CHOLESTEROL INCREASED
     Dosage: 1000MG/40MG DAILY
  5. SIMCOR 1000MG/40MG [Suspect]
     Indication: HIGH DENSITY LIPOPROTEIN
  6. SIMCOR 1000MG/40MG [Suspect]
     Indication: LOW DENSITY LIPOPROTEIN
  7. ASA [Concomitant]
     Indication: PRODUCT USED FOR UNKNOWN INDICATION
  8. PLAVIX [Concomitant]
     Indication: PRODUCT USED FOR UNKNOWN INDICATION
  9. VITAMIN D [Concomitant]
     Indication: PRODUCT USED FOR UNKNOWN INDICATION
     Dosage: DAILY
  10. VITAMIN B [Concomitant]
     Indication: PRODUCT USED FOR UNKNOWN INDICATION
     Dosage: DAILY

REACTIONS (3)
  - Flushing [Recovered/Resolved]
  - Hyperhidrosis [Recovered/Resolved]
  - Erythema [Recovered/Resolved]
